FAERS Safety Report 24547216 (Version 1)
Quarter: 2024Q4

REPORT INFORMATION
  Report Type: Spontaneous
  Country: RU (occurrence: RU)
  Receive Date: 20241025
  Receipt Date: 20241025
  Transmission Date: 20250115
  Serious: Yes (Death)
  Sender: ABBVIE
  Company Number: RU-ABBVIE-5687535

PATIENT
  Age: 60 Year
  Sex: Male

DRUGS (2)
  1. VENETOCLAX [Suspect]
     Active Substance: VENETOCLAX
     Indication: Acute biphenotypic leukaemia
     Route: 048
  2. DACOGEN [Concomitant]
     Active Substance: DECITABINE
     Indication: Acute biphenotypic leukaemia

REACTIONS (2)
  - Acute biphenotypic leukaemia [Fatal]
  - Off label use [Unknown]
